FAERS Safety Report 7514732-X (Version None)
Quarter: 2011Q2

REPORT INFORMATION
  Report Type: 
  Country: None (occurrence: None)
  Receive Date: 20110520
  Receipt Date: 20110517
  Transmission Date: 20111010
  Serious: Yes (Hospitalization)
  Sender: FDA-Public Use
  Company Number: 11-298

PATIENT
  Age: 57 Year
  Sex: Female

DRUGS (1)
  1. ALEVE [Suspect]
     Dates: end: 20110509

REACTIONS (1)
  - ULCER [None]
